FAERS Safety Report 7871703-1 (Version None)
Quarter: 2011Q4

REPORT INFORMATION
  Report Type: 
  Country: None (occurrence: None)
  Receive Date: 20111029
  Receipt Date: 20110307
  Transmission Date: 20120403
  Serious: No
  Sender: FDA-Public Use
  Company Number: US-AMGEN-USASP2011012632

PATIENT
  Sex: Female

DRUGS (6)
  1. ENBREL [Suspect]
     Indication: PRODUCT USED FOR UNKNOWN INDICATION
     Dosage: 50 MG, QWK
  2. VENLAFAXINE [Concomitant]
     Dosage: 25 MG, UNK
  3. ESTRADIOL [Concomitant]
     Dosage: 0.5 MG, UNK
  4. SIMPONI [Concomitant]
     Dosage: UNK
  5. SYNTHROID [Concomitant]
     Dosage: UNK
  6. DIOVAN [Concomitant]
     Dosage: 40 MG, UNK

REACTIONS (1)
  - INJECTION SITE SWELLING [None]
